FAERS Safety Report 5750649-9 (Version None)
Quarter: 2008Q2

REPORT INFORMATION
  Report Type: 
  Country: None (occurrence: None)
  Receive Date: 20080528
  Receipt Date: 20080514
  Transmission Date: 20081010
  Serious: No
  Sender: FDA-Public Use
  Company Number: US-ABBOTT-08P-163-0451826-00

PATIENT
  Sex: Female
  Weight: 81.72 kg

DRUGS (2)
  1. SIMCOR [Suspect]
     Indication: BLOOD CHOLESTEROL INCREASED
     Route: 048
     Dates: start: 20080423
  2. LEVOTHYROXINE SODIUM [Concomitant]
     Route: 048

REACTIONS (3)
  - FLUSHING [None]
  - HOT FLUSH [None]
  - MENSTRUAL DISORDER [None]
